FAERS Safety Report 6332965-5 (Version None)
Quarter: 2009Q3

REPORT INFORMATION
  Report Type: 
  Country: None (occurrence: None)
  Receive Date: 20090828
  Receipt Date: 20090817
  Transmission Date: 20100115
  Serious: Yes (Other)
  Sender: FDA-Public Use
  Company Number: PHHY2009BR34621

PATIENT
  Sex: Male
  Weight: 67 kg

DRUGS (2)
  1. RITALIN [Suspect]
     Indication: MEMORY IMPAIRMENT
     Dosage: 10 MG 1 TABLET DAILY
     Route: 048
  2. RITALIN [Suspect]
     Dosage: 3 TABLETS DAILY
     Route: 048

REACTIONS (11)
  - APATHY [None]
  - ERYTHEMA [None]
  - FALL [None]
  - INSOMNIA [None]
  - LIMB INJURY [None]
  - MALAISE [None]
  - OEDEMA PERIPHERAL [None]
  - OROPHARYNGEAL PAIN [None]
  - PAIN IN EXTREMITY [None]
  - PHARYNGITIS [None]
  - PLATELET COUNT DECREASED [None]
